FAERS Safety Report 9009525 (Version 1)
Quarter: 2013Q1

REPORT INFORMATION
  Report Type: Spontaneous
  Country: TR (occurrence: TR)
  Receive Date: 20130110
  Receipt Date: 20130110
  Transmission Date: 20140127
  Serious: Yes (Hospitalization, Other)
  Sender: FDA-Public Use
  Company Number: TR-GLAXOSMITHKLINE-B0857127A

PATIENT
  Age: 22 Year
  Sex: Female

DRUGS (1)
  1. PROPAFENONE [Suspect]
     Route: 048

REACTIONS (9)
  - Suicide attempt [Recovered/Resolved]
  - Arrhythmia [Unknown]
  - General physical health deterioration [Unknown]
  - Discomfort [Unknown]
  - Stupor [Unknown]
  - Electrocardiogram QRS complex prolonged [Unknown]
  - Accelerated idioventricular rhythm [Unknown]
  - Epilepsy [Unknown]
  - Ventricular tachycardia [Unknown]
